FAERS Safety Report 18343742 (Version 2)
Quarter: 2020Q4

REPORT INFORMATION
  Report Type: Report from Study
  Country: US (occurrence: US)
  Receive Date: 20201005
  Receipt Date: 20201014
  Transmission Date: 20210114
  Serious: Yes (Hospitalization, Other)
  Sender: FDA-Public Use
  Company Number: US-BAYER-2020-205435

PATIENT
  Age: 65 Year
  Sex: Female
  Weight: 64.4 kg

DRUGS (3)
  1. ADEMPAS [Suspect]
     Active Substance: RIOCIGUAT
     Indication: PULMONARY ARTERIAL HYPERTENSION
     Dosage: UNK
     Route: 048
     Dates: start: 20200226
  2. UPTRAVI [Concomitant]
     Active Substance: SELEXIPAG
     Dosage: UNK
  3. ADEMPAS [Suspect]
     Active Substance: RIOCIGUAT
     Indication: PULMONARY ARTERIAL HYPERTENSION
     Dosage: 2 MG, TID
     Route: 048
     Dates: start: 2020

REACTIONS (12)
  - SARS-CoV-2 test positive [Unknown]
  - Hypotension [None]
  - Altered state of consciousness [None]
  - Oedema [None]
  - Headache [None]
  - Malaise [None]
  - Agitation [None]
  - Dysphonia [None]
  - Dehydration [Unknown]
  - Urinary tract infection [None]
  - Gastric disorder [Unknown]
  - Dyspnoea [None]

NARRATIVE: CASE EVENT DATE: 202009
